FAERS Safety Report 15305871 (Version 1)
Quarter: 2018Q3

REPORT INFORMATION
  Report Type: Spontaneous
  Country: US (occurrence: US)
  Receive Date: 20180822
  Receipt Date: 20180822
  Transmission Date: 20181010
  Serious: No
  Sender: FDA-Public Use
  Company Number: US-BIOGEN-2018BI00618214

PATIENT
  Age: 51 Year
  Sex: Female

DRUGS (3)
  1. TECFIDERA [Suspect]
     Active Substance: DIMETHYL FUMARATE
     Dosage: X 23 DAYS AFTER 120 MG DOSE?MAINTENANCE DOSE
     Route: 048
     Dates: start: 201807
  2. TECFIDERA [Suspect]
     Active Substance: DIMETHYL FUMARATE
     Route: 065
     Dates: start: 20180730
  3. TECFIDERA [Suspect]
     Active Substance: DIMETHYL FUMARATE
     Indication: MULTIPLE SCLEROSIS
     Dosage: X 7 DAYS ?STARTER DOSE
     Route: 048
     Dates: start: 20180727

REACTIONS (3)
  - Discomfort [Unknown]
  - Depressed mood [Unknown]
  - Flushing [Unknown]

NARRATIVE: CASE EVENT DATE: 20180727
